FAERS Safety Report 8372260-6 (Version None)
Quarter: 2012Q2

REPORT INFORMATION
  Report Type: 
  Country: None (occurrence: None)
  Receive Date: 20120521
  Receipt Date: 20120508
  Transmission Date: 20120825
  Serious: Yes (Other)
  Sender: FDA-Public Use
  Company Number: DK-AMGEN-DNKCT2012012971

PATIENT
  Age: 54 Year
  Sex: Male
  Weight: 86 kg

DRUGS (9)
  1. ETANERCEPT [Suspect]
     Indication: RHEUMATOID ARTHRITIS
     Dosage: 25 MG, UNK
     Dates: start: 20030925, end: 20110517
  2. MIRTAZAPINE [Concomitant]
     Dosage: 30 MG, 1X/DAY
  3. TRAMADOL HYDROCHLORIDE [Concomitant]
     Dosage: 100 MG, 2X/DAY
  4. METHOTREXATE [Suspect]
     Indication: RHEUMATOID ARTHRITIS
     Dosage: STRENGH  2.5 MG
     Route: 048
     Dates: start: 20041020, end: 20101213
  5. FOLIMET [Concomitant]
     Dosage: 5 MG, 1X/DAY
  6. OXAZEPAM [Concomitant]
     Dosage: 15 MG, 3X/DAY
  7. PREDNISOLONE [Concomitant]
     Dosage: 5 MG, 1X/DAY
  8. CALCIUM [Concomitant]
     Indication: SUPPLEMENTATION THERAPY
     Dosage: 2 TABLETS DAILY
  9. ACETAMINOPHEN [Concomitant]
     Dosage: 1 G, 2X/DAY

REACTIONS (2)
  - RENAL CELL CARCINOMA [None]
  - PLEURAL MESOTHELIOMA [None]
